FAERS Safety Report 21516794 (Version 2)
Quarter: 2022Q4

REPORT INFORMATION
  Report Type: Report from Study
  Country: US (occurrence: US)
  Receive Date: 20221028
  Receipt Date: 20221229
  Transmission Date: 20230112
  Serious: Yes (Other)
  Sender: FDA-Public Use
  Company Number: US-BIOGEN-2022BI01163919

PATIENT
  Sex: Female

DRUGS (2)
  1. PLEGRIDY [Suspect]
     Active Substance: PEGINTERFERON BETA-1A
     Indication: Multiple sclerosis
     Route: 050
     Dates: start: 20220726
  2. PLEGRIDY [Suspect]
     Active Substance: PEGINTERFERON BETA-1A

REACTIONS (2)
  - Atrial fibrillation [Recovered/Resolved]
  - Malaise [Not Recovered/Not Resolved]
